FAERS Safety Report 5380964-2 (Version None)
Quarter: 2007Q3

REPORT INFORMATION
  Report Type: 
  Country: None (occurrence: None)
  Receive Date: 20070702
  Receipt Date: 20060908
  Transmission Date: 20080115
  Serious: Yes (Hospitalization)
  Sender: FDA-Public Use
  Company Number: SPV1-2006-00304

PATIENT
  Age: 44 Year
  Sex: Male

DRUGS (6)
  1. PENTASA [Suspect]
     Dosage: 2 G DAILY, ORAL
     Route: 048
     Dates: start: 20060424, end: 20060623
  2. REBETOL [Suspect]
     Dosage: 800 MG DAILY, ORAL
     Route: 048
     Dates: start: 20050123, end: 20060623
  3. VIRAFERONPEG [Suspect]
     Dosage: 120 MCG, EVERY WEEK, SUBCUTANEOUS
     Route: 058
     Dates: start: 20050123, end: 20060623
  4. FOSAMPRENAVIR            (FOSAMPRENAVIR) [Concomitant]
  5. RITONAVIR            (RITONAVIR) [Concomitant]
  6. EMTRICITABINE              (EMTRICITABINE) [Concomitant]

REACTIONS (1)
  - THROMBOCYTOPENIA [None]
